FAERS Safety Report 9857244 (Version 1)
Quarter: 2014Q1

REPORT INFORMATION
  Report Type: Spontaneous
  Country: AU (occurrence: AU)
  Receive Date: 20140130
  Receipt Date: 20140130
  Transmission Date: 20141002
  Serious: Yes (Disabling, Other)
  Sender: FDA-Public Use
  Company Number: AU-BAXTER-2014BAX003661

PATIENT
  Sex: Male

DRUGS (4)
  1. CEPROTIN [Suspect]
     Indication: PURPURA FULMINANS
  2. CLEXANE [Suspect]
     Indication: PURPURA FULMINANS
     Route: 065
  3. HEPARIN [Concomitant]
     Indication: PURPURA FULMINANS
     Route: 065
  4. WARFARIN [Concomitant]
     Indication: PURPURA FULMINANS
     Route: 065

REACTIONS (3)
  - Blindness [Not Recovered/Not Resolved]
  - Glaucoma [Unknown]
  - Otitis media [Recovered/Resolved]
